FAERS Safety Report 9355583 (Version 5)
Quarter: 2014Q2

REPORT INFORMATION
  Report Type: Spontaneous
  Country: US (occurrence: US)
  Receive Date: 20130619
  Receipt Date: 20140523
  Transmission Date: 20141212
  Serious: No
  Sender: FDA-Public Use
  Company Number: US-009507513-1306USA008319

PATIENT
  Sex: Male

DRUGS (1)
  1. PROPECIA [Suspect]
     Dosage: 1 MG, QD
     Route: 048
     Dates: start: 20040807, end: 200711

REACTIONS (13)
  - Back pain [Unknown]
  - Chronic respiratory disease [Unknown]
  - Mumps [Unknown]
  - Asthma [Unknown]
  - Prostatomegaly [Not Recovered/Not Resolved]
  - Sexual dysfunction [Not Recovered/Not Resolved]
  - Erectile dysfunction [Not Recovered/Not Resolved]
  - Muscle strain [Unknown]
  - Libido decreased [Unknown]
  - Dysuria [Not Recovered/Not Resolved]
  - Cough [Unknown]
  - Dyspnoea [Unknown]
  - Neck pain [Unknown]
